FAERS Safety Report 5965593-1 (Version None)
Quarter: 2008Q4

REPORT INFORMATION
  Report Type: 
  Country: None (occurrence: None)
  Receive Date: 20081125
  Receipt Date: 20081113
  Transmission Date: 20090506
  Serious: Yes (Other)
  Sender: FDA-Public Use
  Company Number: US-AMGEN-US318863

PATIENT
  Sex: Female

DRUGS (3)
  1. NPLATE [Suspect]
     Indication: IDIOPATHIC THROMBOCYTOPENIC PURPURA
     Route: 065
     Dates: start: 20080917
  2. FOLIC ACID [Concomitant]
     Route: 065
     Dates: start: 20080918
  3. TYLENOL (CAPLET) [Concomitant]
     Route: 065

REACTIONS (3)
  - BACK PAIN [None]
  - CATHETER RELATED INFECTION [None]
  - PLATELET COUNT DECREASED [None]
